FAERS Safety Report 9933878 (Version 2)
Quarter: 2014Q1

REPORT INFORMATION
  Report Type: Spontaneous
  Country: US (occurrence: US)
  Receive Date: 20140228
  Receipt Date: 20140228
  Transmission Date: 20141002
  Serious: No
  Sender: FDA-Public Use
  Company Number: US-ABBVIE-13P-163-1174381-00

PATIENT
  Age: 47 Year
  Sex: Male
  Weight: 122.58 kg

DRUGS (5)
  1. ANDROGEL 1.62% [Suspect]
     Indication: BLOOD TESTOSTERONE DECREASED
     Route: 061
     Dates: start: 201308, end: 201310
  2. ANDROGEL 1.62% [Suspect]
     Route: 061
     Dates: start: 201310, end: 201311
  3. ANDROGEL 1.62% [Suspect]
     Route: 061
     Dates: start: 201311
  4. LANSOPRAZOLE [Concomitant]
     Indication: BLOOD PRESSURE MANAGEMENT
  5. UNKNOWN ANTACID MEDICATION [Concomitant]
     Indication: PRODUCT USED FOR UNKNOWN INDICATION

REACTIONS (7)
  - Application site pruritus [Not Recovered/Not Resolved]
  - Application site erythema [Not Recovered/Not Resolved]
  - Paraesthesia [Not Recovered/Not Resolved]
  - Application site rash [Not Recovered/Not Resolved]
  - Hyperaesthesia [Not Recovered/Not Resolved]
  - Application site erythema [Not Recovered/Not Resolved]
  - Application site rash [Not Recovered/Not Resolved]
